FAERS Safety Report 4715911-7 (Version None)
Quarter: 2005Q3

REPORT INFORMATION
  Report Type: 
  Country: None (occurrence: None)
  Receive Date: 20050718
  Receipt Date: 20050706
  Transmission Date: 20060218
  Serious: Yes (Other)
  Sender: FDA-Public Use
  Company Number: 200515745US

PATIENT
  Age: 45 Year
  Sex: Female

DRUGS (6)
  1. LANTUS [Suspect]
     Indication: DIABETES MELLITUS INSULIN-DEPENDENT
     Dosage: DOSE: UNKOWN
     Route: 051
  2. NOVOLOG [Concomitant]
     Dosage: DOSE: SLIDING SCALE; FREQUENCY: BEFORE MEALS
  3. PRINIVIL [Concomitant]
     Indication: BLOOD PRESSURE
     Dosage: DOSE: UNKNOWN
  4. ASPIRIN [Concomitant]
     Indication: CARDIAC DISORDER
  5. LIPITOR [Concomitant]
     Indication: BLOOD CHOLESTEROL
     Dosage: DOSE: UNKNOWN
  6. PROZAC [Concomitant]
     Dosage: DOSE: UNKNOWN

REACTIONS (7)
  - CARPAL TUNNEL SYNDROME [None]
  - KETOACIDOSIS [None]
  - MYOCARDIAL INFARCTION [None]
  - QUADRUPLE VESSEL BYPASS GRAFT [None]
  - RENAL FAILURE [None]
  - RENAL FAILURE CHRONIC [None]
  - SHOULDER PAIN [None]
